FAERS Safety Report 17509864 (Version 1)
Quarter: 2020Q1

REPORT INFORMATION
  Report Type: Spontaneous
  Country: US (occurrence: US)
  Receive Date: 20200226
  Receipt Date: 20200226
  Transmission Date: 20200409
  Serious: Yes (Hospitalization)
  Sender: FDA-Public Use
  Company Number: None

PATIENT
  Age: 56 Year
  Sex: Female

DRUGS (10)
  1. BACTRIM [Concomitant]
     Active Substance: SULFAMETHOXAZOLE\TRIMETHOPRIM
  2. MYCOPHENOLATE 500MG [Suspect]
     Active Substance: MYCOPHENOLIC ACID
     Indication: RENAL TRANSPLANT
     Route: 048
     Dates: start: 20200130
  3. PREDNISONE. [Concomitant]
     Active Substance: PREDNISONE
  4. TACROLIMUS. [Concomitant]
     Active Substance: TACROLIMUS
  5. ASPIRIN. [Concomitant]
     Active Substance: ASPIRIN
  6. VALGANCICLOVIR. [Concomitant]
     Active Substance: VALGANCICLOVIR
  7. MAG OXIDE [Concomitant]
     Active Substance: MAGNESIUM OXIDE
  8. LABETOLOL [Concomitant]
     Active Substance: LABETALOL HYDROCHLORIDE
  9. PANTOPRAZOLE [Concomitant]
     Active Substance: PANTOPRAZOLE
  10. K-PHOS [Concomitant]
     Active Substance: POTASSIUM PHOSPHATE, MONOBASIC

REACTIONS (1)
  - Renal transplant [None]
